FAERS Safety Report 4467093-7 (Version None)
Quarter: 2004Q4

REPORT INFORMATION
  Report Type: 
  Country: None (occurrence: None)
  Receive Date: 20041004
  Receipt Date: 20040921
  Transmission Date: 20050328
  Serious: Yes (Hospitalization, Other)
  Sender: FDA-Public Use
  Company Number: 2004068964

PATIENT
  Sex: Female

DRUGS (3)
  1. NEURONTIN [Suspect]
     Indication: PRURITUS
     Dosage: 900 MG (300 MG, 3 IN 1 D)
     Dates: start: 19990101, end: 20030601
  2. SERTRALINE HCL [Concomitant]
  3. LORAZEPAM [Concomitant]

REACTIONS (19)
  - ASTHENIA [None]
  - BALANCE DISORDER [None]
  - COORDINATION ABNORMAL [None]
  - DEPRESSION [None]
  - DIFFICULTY IN WALKING [None]
  - DIZZINESS [None]
  - FALL [None]
  - FATIGUE [None]
  - FEELING ABNORMAL [None]
  - GAIT DISTURBANCE [None]
  - HEADACHE [None]
  - LIMB INJURY [None]
  - LOSS OF CONSCIOUSNESS [None]
  - MEDICATION ERROR [None]
  - MOOD SWINGS [None]
  - RELATIONSHIP BREAKDOWN [None]
  - SOMNOLENCE [None]
  - THINKING ABNORMAL [None]
  - UPPER LIMB FRACTURE [None]
